FAERS Safety Report 26048218 (Version 2)
Quarter: 2025Q4

REPORT INFORMATION
  Report Type: Spontaneous
  Country: US (occurrence: US)
  Receive Date: 20251114
  Receipt Date: 20251126
  Transmission Date: 20260117
  Serious: Yes (Hospitalization, Other)
  Sender: FRESENIUS MEDICAL CARE
  Company Number: US-FMCRTG-FMC-2511-001779

PATIENT
  Age: 72 Year
  Sex: Male
  Weight: 75.5 kg

DRUGS (1)
  1. DELFLEX WITH DEXTROSE 1.5% LOW MAGNESIUM LOW CALCIUM [Suspect]
     Active Substance: CALCIUM CHLORIDE\DEXTROSE\MAGNESIUM CHLORIDE\SODIUM CHLORIDE\SODIUM LACTATE
     Indication: End stage renal disease
     Dosage: 1500 FOR THREE CYCLES WITH A LAST FILL OF 1500 ML AND ONE DAYTIME EXCHANGE OF 1500 ML
     Route: 033

REACTIONS (2)
  - Catheter site haemorrhage [Unknown]
  - Peritonitis bacterial [Recovering/Resolving]
